FAERS Safety Report 8446465-X (Version None)
Quarter: 2012Q2

REPORT INFORMATION
  Report Type: 
  Country: None (occurrence: None)
  Receive Date: 20120618
  Receipt Date: 20120402
  Transmission Date: 20120825
  Serious: Yes (Other)
  Sender: FDA-Public Use
  Company Number: US-TEVA-331439USA

PATIENT
  Sex: Female

DRUGS (2)
  1. FENTANYL-100 [Concomitant]
  2. ACTIQ [Suspect]
     Indication: ABDOMINAL PAIN
     Dosage: 3600 MILLIGRAM;
     Route: 002
     Dates: start: 20070101, end: 20120329

REACTIONS (4)
  - DRUG WITHDRAWAL SYNDROME [None]
  - DRUG ADMINISTRATION ERROR [None]
  - PAIN [None]
  - MOOD ALTERED [None]
